FAERS Safety Report 16157554 (Version 6)
Quarter: 2022Q4

REPORT INFORMATION
  Report Type: Spontaneous
  Country: US (occurrence: US)
  Receive Date: 20190404
  Receipt Date: 20221219
  Transmission Date: 20230112
  Serious: No
  Sender: FDA-Public Use
  Company Number: US-PFIZER INC-2019142648

PATIENT
  Age: 75 Year
  Sex: Female

DRUGS (1)
  1. XELJANZ XR [Suspect]
     Active Substance: TOFACITINIB CITRATE
     Indication: Rheumatoid arthritis
     Dosage: 11 MG

REACTIONS (7)
  - Drug ineffective [Unknown]
  - Nasopharyngitis [Unknown]
  - Insomnia [Unknown]
  - Illness [Unknown]
  - COVID-19 [Unknown]
  - Pain in extremity [Unknown]
  - Back pain [Unknown]
